APPROVED DRUG PRODUCT: AZELASTINE HYDROCHLORIDE ALLERGY
Active Ingredient: AZELASTINE HYDROCHLORIDE
Strength: 0.2055MG/SPRAY
Dosage Form/Route: SPRAY, METERED;NASAL
Application: A216421 | Product #001
Applicant: APOTEX INC
Approved: May 29, 2024 | RLD: No | RS: No | Type: OTC